FAERS Safety Report 9679021 (Version 2)
Quarter: 2013Q4

REPORT INFORMATION
  Report Type: Spontaneous
  Country: JP (occurrence: JP)
  Receive Date: 20131108
  Receipt Date: 20131113
  Transmission Date: 20140711
  Serious: Yes (Hospitalization, Other)
  Sender: FDA-Public Use
  Company Number: JP-PFIZER INC-2013319468

PATIENT
  Age: 89 Year
  Sex: Female

DRUGS (6)
  1. JZOLOFT [Suspect]
     Indication: ANXIETY
     Dosage: 25 MG/DAY
     Route: 048
  2. DESYREL [Concomitant]
     Dosage: UNK
     Route: 048
  3. SEDIEL [Concomitant]
     Dosage: UNK
     Route: 048
  4. REBAMIPIDE [Concomitant]
     Dosage: UNK
     Route: 048
  5. EVISTA [Concomitant]
     Dosage: UNK
     Route: 048
  6. SEROQUEL [Concomitant]
     Indication: RESTLESSNESS
     Dosage: UNK
     Route: 048

REACTIONS (1)
  - Gastric disorder [Unknown]
